FAERS Safety Report 25362239 (Version 1)
Quarter: 2025Q2

REPORT INFORMATION
  Report Type: Spontaneous
  Country: US (occurrence: None)
  Receive Date: 20250523
  Receipt Date: 20250523
  Transmission Date: 20250716
  Serious: Yes (Hospitalization)
  Sender: FDA-CTU
  Company Number: None

PATIENT
  Age: 45 Year
  Sex: Female
  Weight: 107.28 kg

DRUGS (3)
  1. INLYTA [Suspect]
     Active Substance: AXITINIB
     Indication: Renal cancer
     Dosage: 5 MG TWICE A DAY ORAL ;?
     Route: 048
     Dates: start: 20250411
  2. FOTIVDA [Concomitant]
     Active Substance: TIVOZANIB HYDROCHLORIDE
     Dates: start: 20240403, end: 20250408
  3. CABOMETYX [Concomitant]
     Active Substance: CABOZANTINIB S-MALATE
     Dates: start: 20230222, end: 20240329

REACTIONS (1)
  - Unevaluable event [None]

NARRATIVE: CASE EVENT DATE: 20250523
